FAERS Safety Report 12866020 (Version 1)
Quarter: 2016Q4

REPORT INFORMATION
  Report Type: Spontaneous
  Country: JP (occurrence: JP)
  Receive Date: 20161020
  Receipt Date: 20161020
  Transmission Date: 20170207
  Serious: Yes (Other)
  Sender: FDA-Public Use
  Company Number: JP-SA-2016SA191062

PATIENT
  Age: 74 Year
  Sex: Female

DRUGS (12)
  1. NORVASC [Suspect]
     Active Substance: AMLODIPINE BESYLATE
     Route: 048
  2. LIVALO [Suspect]
     Active Substance: PITAVASTATIN CALCIUM
     Route: 048
  3. MUCOSOLVAN [Suspect]
     Active Substance: AMBROXOL HYDROCHLORIDE
     Route: 048
  4. CALONAL [Suspect]
     Active Substance: ACETAMINOPHEN
     Route: 048
  5. LAC B [Suspect]
     Active Substance: BIFIDOBACTERIUM SPP.
     Route: 048
  6. DEPAS [Suspect]
     Active Substance: ETIZOLAM
     Route: 048
  7. MEILAX [Suspect]
     Active Substance: ETHYL LOFLAZEPATE
     Route: 048
  8. MYSLEE [Suspect]
     Active Substance: ZOLPIDEM TARTRATE
     Route: 048
  9. TRAMAL [Suspect]
     Active Substance: TRAMADOL
     Indication: PAIN
     Route: 048
     Dates: start: 20160804, end: 20160806
  10. TRAMAL [Suspect]
     Active Substance: TRAMADOL
     Indication: PAIN
     Route: 048
     Dates: start: 20160729, end: 20160803
  11. NEXIUM [Suspect]
     Active Substance: ESOMEPRAZOLE MAGNESIUM
     Route: 048
  12. MUCOSTA [Suspect]
     Active Substance: REBAMIPIDE
     Route: 048

REACTIONS (3)
  - Neurogenic bladder [Not Recovered/Not Resolved]
  - Constipation [Unknown]
  - Anorectal disorder [Unknown]

NARRATIVE: CASE EVENT DATE: 20160805
